FAERS Safety Report 9884600 (Version 1)
Quarter: 2014Q1

REPORT INFORMATION
  Report Type: Spontaneous
  Country: US (occurrence: None)
  Receive Date: 20140207
  Receipt Date: 20140207
  Transmission Date: 20141002
  Serious: No
  Sender: FDA-Public Use
  Company Number: None

PATIENT
  Age: 36 Year
  Sex: Female
  Weight: 63.5 kg

DRUGS (1)
  1. THINOGENICS [Suspect]
     Indication: WEIGHT DECREASED

REACTIONS (3)
  - Heart rate increased [None]
  - Blood pressure increased [None]
  - Product colour issue [None]
